FAERS Safety Report 16668960 (Version 1)
Quarter: 2019Q3

REPORT INFORMATION
  Report Type: Spontaneous
  Country: US (occurrence: US)
  Receive Date: 20190805
  Receipt Date: 20190805
  Transmission Date: 20191004
  Serious: Yes (Other)
  Sender: FDA-Public Use
  Company Number: US-PFIZER INC-2019330957

PATIENT
  Age: 45 Year
  Sex: Female
  Weight: 58.97 kg

DRUGS (1)
  1. PREPARATION H SUPPOSITORY [Suspect]
     Active Substance: COCOA BUTTER\PHENYLEPHRINE HYDROCHLORIDE
     Indication: HAEMORRHOIDS THROMBOSED
     Dosage: 1 DF, AS NEEDED (1 SUPPOSITORY AS NEEDED)
     Dates: start: 201907, end: 201907

REACTIONS (3)
  - Heart rate decreased [Recovered/Resolved]
  - Blood pressure increased [Recovered/Resolved]
  - Palpitations [Recovered/Resolved]

NARRATIVE: CASE EVENT DATE: 201907
